FAERS Safety Report 17929612 (Version 1)
Quarter: 2020Q2

REPORT INFORMATION
  Report Type: Spontaneous
  Country: US (occurrence: US)
  Receive Date: 20200623
  Receipt Date: 20200623
  Transmission Date: 20200714
  Serious: No
  Sender: FDA-Public Use
  Company Number: US-ALLERGAN-1950145US

PATIENT
  Sex: Female

DRUGS (1)
  1. KYBELLA [Suspect]
     Active Substance: DEOXYCHOLIC ACID
     Indication: FAT TISSUE INCREASED
     Dosage: 0.2 CC PER SITE, SINGLE
     Route: 058
     Dates: start: 20191029, end: 20191029

REACTIONS (2)
  - Contusion [Recovering/Resolving]
  - Nodule [Recovering/Resolving]
